FAERS Safety Report 7380519-4 (Version None)
Quarter: 2011Q1

REPORT INFORMATION
  Report Type: 
  Country: None (occurrence: None)
  Receive Date: 20110329
  Receipt Date: 20091122
  Transmission Date: 20110831
  Serious: Yes (Death, Hospitalization, Other)
  Sender: FDA-Public Use
  Company Number: US-BAYER-200940138NA

PATIENT
  Sex: Male
  Weight: 113.38 kg

DRUGS (11)
  1. LEVOPHED [Concomitant]
     Dosage: UNK
     Dates: start: 20020710
  2. NITROGLYCERIN [Concomitant]
     Dosage: UNK
     Dates: start: 20020710
  3. TRASYLOL [Suspect]
     Indication: CORONARY ARTERY BYPASS
     Dosage: UNK
     Route: 042
     Dates: start: 20020710, end: 20020710
  4. HEPARIN SODIUM [Concomitant]
     Dosage: UNK
     Dates: start: 20020710, end: 20020710
  5. CELEBREX [Concomitant]
  6. TRASYLOL [Suspect]
     Indication: AORTIC VALVE REPLACEMENT
  7. PROTAMINE SULFATE [Concomitant]
     Dosage: UNK
     Dates: start: 20020710, end: 20020710
  8. DOPAMINE [Concomitant]
     Dosage: UNK
     Dates: start: 20020710
  9. COUMADIN [Concomitant]
  10. ASPIRIN [Concomitant]
  11. ANCEF [Concomitant]
     Dosage: UNK
     Dates: start: 20020710

REACTIONS (13)
  - RENAL INJURY [None]
  - ANHEDONIA [None]
  - RENAL FAILURE [None]
  - CEREBROVASCULAR ACCIDENT [None]
  - FEAR [None]
  - PAIN [None]
  - MYOCARDIAL INFARCTION [None]
  - ANXIETY [None]
  - INJURY [None]
  - DEATH [None]
  - DEPRESSION [None]
  - EMOTIONAL DISTRESS [None]
  - UNEVALUABLE EVENT [None]
